FAERS Safety Report 10936393 (Version 1)
Quarter: 2015Q1

REPORT INFORMATION
  Report Type: Report from Study
  Country: BR (occurrence: BR)
  Receive Date: 20150321
  Receipt Date: 20150321
  Transmission Date: 20150721
  Serious: Yes (Other)
  Sender: FDA-Public Use
  Company Number: BR-BIOGENIDEC-2014BI014433

PATIENT
  Age: 35 Year
  Sex: Female

DRUGS (3)
  1. VELIJA (DULOXETINE HYDROCHLORIDE) [Concomitant]
     Route: 048
  2. AVONEX [Suspect]
     Active Substance: INTERFERON BETA-1A
     Indication: MULTIPLE SCLEROSIS
     Route: 030
     Dates: start: 20140124, end: 201501
  3. DONAREN (TRAZODONE HYDROCHLORIDE) [Concomitant]
     Route: 048

REACTIONS (3)
  - Chills [Not Recovered/Not Resolved]
  - Drug-induced liver injury [Recovered/Resolved with Sequelae]
  - Asthenia [Not Recovered/Not Resolved]

NARRATIVE: CASE EVENT DATE: 20140124
